FAERS Safety Report 9224288 (Version 1)
Quarter: 2013Q2

REPORT INFORMATION
  Report Type: Spontaneous
  Country: US (occurrence: US)
  Receive Date: 20130411
  Receipt Date: 20130411
  Transmission Date: 20140414
  Serious: No
  Sender: FDA-Public Use
  Company Number: US-009507513-1304USA004930

PATIENT
  Age: 41 Year
  Sex: Male

DRUGS (1)
  1. DULERA [Suspect]
     Indication: ASTHMA
     Dosage: 200 MCG/5 MCG, INHALATION
     Dates: start: 20130226

REACTIONS (1)
  - Gastrooesophageal reflux disease [Not Recovered/Not Resolved]
